FAERS Safety Report 9742196 (Version 1)
Quarter: 2013Q4

REPORT INFORMATION
  Report Type: Report from Study
  Country: US (occurrence: US)
  Receive Date: 20131210
  Receipt Date: 20131210
  Transmission Date: 20140711
  Serious: Yes (Hospitalization)
  Sender: FDA-Public Use
  Company Number: US-EISAI INC-E2007-01447-CLI-US

PATIENT
  Age: 21 Year
  Sex: Male
  Weight: 87.5 kg

DRUGS (4)
  1. PLACEBO [Suspect]
     Indication: GRAND MAL CONVULSION
     Dosage: PLACEBO
     Route: 048
     Dates: start: 20131031
  2. LAMOTRIGIN [Concomitant]
     Indication: EPILEPSY
     Route: 048
     Dates: start: 20130813
  3. OXCARBAZEPINE [Concomitant]
     Indication: EPILEPSY
     Route: 048
     Dates: start: 20130829
  4. PROPRANOLOL [Concomitant]
     Indication: HEADACHE
     Route: 048
     Dates: start: 20130829

REACTIONS (1)
  - Status epilepticus [Recovering/Resolving]
